FAERS Safety Report 4976470-7 (Version None)
Quarter: 2006Q2

REPORT INFORMATION
  Report Type: 
  Country: None (occurrence: None)
  Receive Date: 20060412
  Receipt Date: 20060406
  Transmission Date: 20061013
  Serious: Yes (Hospitalization)
  Sender: FDA-Public Use
  Company Number: THQ2006A00300

PATIENT
  Age: 62 Year
  Sex: Female

DRUGS (3)
  1. ACTOS [Suspect]
     Indication: BLOOD GLUCOSE ABNORMAL
     Route: 048
     Dates: start: 20051215
  2. SALURES (BENDROFLUMETHIAZIDE) [Concomitant]
  3. COZAAR [Concomitant]

REACTIONS (4)
  - CARDIAC ASTHMA [None]
  - CARDIAC FAILURE [None]
  - OEDEMA PERIPHERAL [None]
  - PULMONARY OEDEMA [None]
